FAERS Safety Report 15000724 (Version 2)
Quarter: 2018Q2

REPORT INFORMATION
  Report Type: Spontaneous
  Country: JP (occurrence: JP)
  Receive Date: 20180612
  Receipt Date: 20180615
  Transmission Date: 20180711
  Serious: Yes (Hospitalization, Other)
  Sender: FDA-Public Use
  Company Number: JP-PFIZER INC-2018233777

PATIENT
  Age: 74 Year
  Sex: Male

DRUGS (3)
  1. DOCETAXEL. [Suspect]
     Active Substance: DOCETAXEL
     Indication: OROPHARYNGEAL CANCER STAGE IV
     Dosage: 60 MG/M2, CYCLIC, (ON DAY 1, INDUCTION CHEMOTHERAPY)
  2. 5 FU [Suspect]
     Active Substance: FLUOROURACIL
     Indication: OROPHARYNGEAL CANCER STAGE IV
     Dosage: 600 MG/M2, CYCLIC, (FROM DAY 1 TO DAY 5, INDUCTION CHEMOTHERAPY)
  3. CISPLATIN. [Suspect]
     Active Substance: CISPLATIN
     Indication: OROPHARYNGEAL CANCER STAGE IV
     Dosage: 60 MG/M2, CYCLIC, (ON DAY 1, INDUCTION CHEMOTHERAPY

REACTIONS (3)
  - Septic shock [Recovered/Resolved]
  - Intestinal ischaemia [Recovered/Resolved]
  - Febrile neutropenia [Unknown]
